FAERS Safety Report 16461385 (Version 4)
Quarter: 2019Q3

REPORT INFORMATION
  Report Type: Spontaneous
  Country: JP (occurrence: JP)
  Receive Date: 20190620
  Receipt Date: 20190731
  Transmission Date: 20191004
  Serious: Yes (Hospitalization, Other)
  Sender: FDA-Public Use
  Company Number: JP-VIFOR (INTERNATIONAL) INC.-VIT-2019-05990

PATIENT
  Age: 73 Year
  Sex: Male

DRUGS (12)
  1. HEPSERA [Suspect]
     Active Substance: ADEFOVIR DIPIVOXIL
     Indication: HEPATITIS B
  2. TAKECAB [Suspect]
     Active Substance: VONOPRAZAN FUMURATE
     Indication: HEPATITIS B
  3. HEPSERA [Suspect]
     Active Substance: ADEFOVIR DIPIVOXIL
     Indication: CIRRHOSIS ALCOHOLIC
     Route: 048
  4. GRACEPTOR [Suspect]
     Active Substance: TACROLIMUS
     Indication: HEPATITIS B
  5. TAKECAB [Suspect]
     Active Substance: VONOPRAZAN FUMURATE
     Indication: CIRRHOSIS ALCOHOLIC
     Route: 048
  6. CELLCEPT [Suspect]
     Active Substance: MYCOPHENOLATE MOFETIL\MYCOPHENOLATE MOFETIL HYDROCHLORIDE
     Indication: HEPATITIS B
     Route: 048
  7. BARACLUDE [Suspect]
     Active Substance: ENTECAVIR
     Indication: CIRRHOSIS ALCOHOLIC
     Route: 048
  8. BARACLUDE [Suspect]
     Active Substance: ENTECAVIR
     Indication: HEPATITIS B
  9. GRACEPTOR [Suspect]
     Active Substance: TACROLIMUS
     Indication: CIRRHOSIS ALCOHOLIC
     Route: 048
  10. MIRCERA [Suspect]
     Active Substance: METHOXY POLYETHYLENE GLYCOL-EPOETIN BETA
     Indication: NEPHROGENIC ANAEMIA
     Route: 058
     Dates: start: 20141219, end: 20190326
  11. CELLCEPT [Suspect]
     Active Substance: MYCOPHENOLATE MOFETIL\MYCOPHENOLATE MOFETIL HYDROCHLORIDE
     Indication: CIRRHOSIS ALCOHOLIC
     Route: 048
  12. HEBSBULIN [Suspect]
     Active Substance: HUMAN HEPATITIS B VIRUS IMMUNE GLOBULIN

REACTIONS (3)
  - Pancytopenia [Recovering/Resolving]
  - Aplasia pure red cell [Unknown]
  - Anaemia [Recovering/Resolving]

NARRATIVE: CASE EVENT DATE: 2019
